FAERS Safety Report 25073083 (Version 2)
Quarter: 2025Q3

REPORT INFORMATION
  Report Type: Spontaneous
  Country: US (occurrence: US)
  Receive Date: 20250313
  Receipt Date: 20250831
  Transmission Date: 20251020
  Serious: No
  Sender: AMGEN
  Company Number: US-AMGEN-USASP2025045308

PATIENT
  Age: 73 Year
  Sex: Female

DRUGS (1)
  1. TEPROTUMUMAB [Suspect]
     Active Substance: TEPROTUMUMAB
     Indication: Endocrine ophthalmopathy
     Dosage: UNK MILLIGRAM/KILOGRAM 8 TIMES, Q3WK
     Route: 040

REACTIONS (4)
  - Blood glucose increased [Unknown]
  - Muscle spasms [Unknown]
  - Onychoclasis [Unknown]
  - Alopecia [Unknown]
